FAERS Safety Report 16830332 (Version 1)
Quarter: 2019Q3

REPORT INFORMATION
  Report Type: Spontaneous
  Country: US (occurrence: US)
  Receive Date: 20190920
  Receipt Date: 20190920
  Transmission Date: 20191005
  Serious: Yes (Hospitalization)
  Sender: FDA-Public Use
  Company Number: US-ALVOGEN-2018-ALVOGEN-097802

PATIENT
  Age: 45 Year
  Sex: Male
  Weight: 85.5 kg

DRUGS (9)
  1. AVELUMAB [Concomitant]
     Active Substance: AVELUMAB
     Indication: THROAT CANCER
     Dates: start: 20180621
  2. CLINDAMYCIN. [Suspect]
     Active Substance: CLINDAMYCIN
     Indication: CELLULITIS
     Route: 042
     Dates: start: 20181024, end: 20181025
  3. DOXYCYCLINE. [Concomitant]
     Active Substance: DOXYCYCLINE
     Indication: RASH
     Dates: start: 20180625
  4. DIPHENHYDRAMINE. [Concomitant]
     Active Substance: DIPHENHYDRAMINE
     Indication: PROPHYLAXIS
     Dates: start: 20180621
  5. ACETAMINOPHEN. [Concomitant]
     Active Substance: ACETAMINOPHEN
     Indication: PROPHYLAXIS
     Dates: start: 20180621
  6. SENNA ALEXANDRINA [Concomitant]
     Active Substance: SENNA LEAF
     Indication: CONSTIPATION
     Dates: start: 20180621
  7. CLINDAMYCIN. [Suspect]
     Active Substance: CLINDAMYCIN
     Indication: CELLULITIS
     Route: 048
  8. CETUXIMAB. [Concomitant]
     Active Substance: CETUXIMAB
     Indication: THROAT CANCER
     Dates: start: 20180621
  9. PALBOCICLIB [Concomitant]
     Active Substance: PALBOCICLIB
     Indication: THROAT CANCER
     Dosage: 21 DAYS
     Dates: start: 20180621

REACTIONS (2)
  - Dermatitis allergic [Unknown]
  - Therapy non-responder [Unknown]

NARRATIVE: CASE EVENT DATE: 201810
